FAERS Safety Report 8809277 (Version 1)
Quarter: 2012Q4

REPORT INFORMATION
  Report Type: Spontaneous
  Country: MX (occurrence: None)
  Receive Date: 20120924
  Receipt Date: 20120924
  Transmission Date: 20130627
  Serious: Yes (Other)
  Sender: FDA-Public Use
  Company Number: None

PATIENT
  Age: 83 Year
  Sex: Male
  Weight: 68 kg

DRUGS (1)
  1. ZOCOR [Suspect]
     Indication: HIGH CHOLESTEROL
     Dosage: 1 tablet daily Buccal
     Route: 002
     Dates: start: 20120714, end: 20120731

REACTIONS (3)
  - Rhabdomyolysis [None]
  - Dehydration [None]
  - Chest pain [None]
